FAERS Safety Report 6965755-0 (Version None)
Quarter: 2010Q3

REPORT INFORMATION
  Report Type: 
  Country: None (occurrence: None)
  Receive Date: 20100903
  Receipt Date: 20100827
  Transmission Date: 20110219
  Serious: Yes (Hospitalization)
  Sender: FDA-Public Use
  Company Number: JP-MERCK-1009USA00051

PATIENT
  Age: 57 Year
  Sex: Male

DRUGS (6)
  1. JANUVIA [Suspect]
     Indication: TYPE 2 DIABETES MELLITUS
     Route: 048
     Dates: start: 20100506, end: 20100512
  2. HERBESSER [Concomitant]
     Route: 065
     Dates: end: 20100512
  3. ACTOS [Concomitant]
     Route: 065
     Dates: end: 20100512
  4. METFORMIN HCL [Concomitant]
     Route: 065
     Dates: end: 20100512
  5. AMARYL [Concomitant]
     Route: 065
     Dates: end: 20100512
  6. MICARDIS [Concomitant]
     Route: 065
     Dates: end: 20100512

REACTIONS (2)
  - DRUG ERUPTION [None]
  - PYREXIA [None]
